FAERS Safety Report 10489611 (Version 2)
Quarter: 2015Q4

REPORT INFORMATION
  Report Type: Spontaneous
  Country: US (occurrence: None)
  Receive Date: 20140815
  Receipt Date: 20151118
  Transmission Date: 20160304
  Serious: Yes (Other)
  Sender: FDA-Public Use
  Company Number: ADR-2013-02212

PATIENT
  Age: 42 Year
  Sex: Female

DRUGS (2)
  1. BACLOFEN INTRATHECAL (2000 MCG/ML) [Suspect]
     Active Substance: BACLOFEN
     Indication: PAIN
     Dosage: 0.6400MG/DAY
  2. FENTANYL (25 MG/ML) [Suspect]
     Active Substance: FENTANYL
     Indication: PAIN
     Dosage: 8.000MG/DAY

REACTIONS (13)
  - Swelling [None]
  - Drug prescribing error [None]
  - Drug withdrawal syndrome [None]
  - Granuloma [None]
  - Nausea [None]
  - Abdominal discomfort [None]
  - Medical device discomfort [None]
  - Pain [None]
  - Diarrhoea [None]
  - Seizure [None]
  - Memory impairment [None]
  - Oedema [None]
  - Feeling of body temperature change [None]
